FAERS Safety Report 24209620 (Version 1)
Quarter: 2024Q3

REPORT INFORMATION
  Report Type: Spontaneous
  Country: US (occurrence: US)
  Receive Date: 20240814
  Receipt Date: 20240814
  Transmission Date: 20241017
  Serious: No
  Sender: UROGEN PHARMA
  Company Number: US-UROGEN PHARMA LTD.-2024-UGN-000086

PATIENT

DRUGS (6)
  1. JELMYTO [Suspect]
     Active Substance: MITOMYCIN
     Indication: Transitional cell cancer of the renal pelvis and ureter
     Dosage: INSTILLATION, ONCE A WEEK
     Dates: start: 20240501, end: 20240501
  2. JELMYTO [Suspect]
     Active Substance: MITOMYCIN
     Dosage: INSTILLATION, ONCE A WEEK
     Dates: start: 20240508, end: 20240508
  3. JELMYTO [Suspect]
     Active Substance: MITOMYCIN
     Dosage: INSTILLATION, ONCE A WEEK
     Dates: start: 20240515, end: 20240515
  4. JELMYTO [Suspect]
     Active Substance: MITOMYCIN
     Dosage: INSTILLATION, ONCE A WEEK
     Dates: start: 20240522, end: 20240522
  5. JELMYTO [Suspect]
     Active Substance: MITOMYCIN
     Dosage: INSTILLATION, ONCE A WEEK
     Dates: start: 20240529, end: 20240529
  6. JELMYTO [Suspect]
     Active Substance: MITOMYCIN
     Dosage: INSTILLATION, ONCE A WEEK
     Dates: start: 20240605, end: 20240605

REACTIONS (1)
  - Urinary tract infection [Recovered/Resolved]

NARRATIVE: CASE EVENT DATE: 20240101
